FAERS Safety Report 15266187 (Version 1)
Quarter: 2018Q3

REPORT INFORMATION
  Report Type: Spontaneous
  Country: US (occurrence: US)
  Receive Date: 20180724
  Receipt Date: 20180724
  Transmission Date: 20181010
  Serious: Yes (Death, Life-Threatening)
  Sender: FDA-Public Use
  Company Number: None

PATIENT
  Age: 64 Year
  Sex: Female

DRUGS (15)
  1. SILDENAFIL. [Suspect]
     Active Substance: SILDENAFIL
     Indication: PULMONARY ARTERIAL HYPERTENSION
     Route: 048
     Dates: start: 20140109, end: 20180702
  2. IRON [Concomitant]
     Active Substance: IRON
  3. XYZAL [Concomitant]
     Active Substance: LEVOCETIRIZINE DIHYDROCHLORIDE
  4. ALLOPURINOL. [Concomitant]
     Active Substance: ALLOPURINOL
  5. LETARIS [Concomitant]
     Active Substance: AMBRISENTAN
  6. VITAMIN C [Concomitant]
     Active Substance: ASCORBIC ACID
  7. COUMADIN [Concomitant]
     Active Substance: WARFARIN SODIUM
  8. NASAL SPR [Concomitant]
  9. RANITIDINE. [Concomitant]
     Active Substance: RANITIDINE
  10. FUROSEMIDE. [Concomitant]
     Active Substance: FUROSEMIDE
  11. MULTI VITAMIN TAB MINERALS [Concomitant]
  12. TIKOSYN [Concomitant]
     Active Substance: DOFETILIDE
  13. KLOR?CON [Concomitant]
     Active Substance: POTASSIUM CHLORIDE
  14. LIPITOR [Concomitant]
     Active Substance: ATORVASTATIN CALCIUM
  15. VELETRI [Concomitant]
     Active Substance: EPOPROSTENOL

REACTIONS (1)
  - Death [None]

NARRATIVE: CASE EVENT DATE: 20180702
